FAERS Safety Report 5170294-6 (Version None)
Quarter: 2006Q4

REPORT INFORMATION
  Report Type: 
  Country: None (occurrence: None)
  Receive Date: 20061204
  Receipt Date: 20061124
  Transmission Date: 20070319
  Serious: Yes (Hospitalization, Other)
  Sender: FDA-Public Use
  Company Number: 2006SP006002

PATIENT
  Age: 2 Year
  Sex: Male
  Weight: 13 kg

DRUGS (1)
  1. BETAMETHASONE [Suspect]
     Indication: BRONCHITIS
     Dosage: 400 GTT;PO
     Route: 048
     Dates: start: 20061109

REACTIONS (2)
  - PURPURA [None]
  - VASCULAR PURPURA [None]
